FAERS Safety Report 19431772 (Version 1)
Quarter: 2021Q2

REPORT INFORMATION
  Report Type: Spontaneous
  Country: FR (occurrence: FR)
  Receive Date: 20210618
  Receipt Date: 20210618
  Transmission Date: 20210717
  Serious: Yes (Other)
  Sender: FDA-Public Use
  Company Number: FR-AUROBINDO-AUR-APL-2021-024704

PATIENT
  Age: 38 Year
  Sex: Female

DRUGS (1)
  1. TAMOXIFEN TABLET [Suspect]
     Active Substance: TAMOXIFEN
     Indication: INVASIVE BREAST CARCINOMA
     Dosage: UNK
     Route: 048
     Dates: start: 2016

REACTIONS (5)
  - Carcinoembryonic antigen increased [Unknown]
  - Malignant neoplasm progression [Unknown]
  - Carbohydrate antigen 15-3 increased [Unknown]
  - Malignant pleural effusion [Unknown]
  - Hormone refractory breast cancer [Unknown]

NARRATIVE: CASE EVENT DATE: 202004
